FAERS Safety Report 7967883-X (Version None)
Quarter: 2011Q4

REPORT INFORMATION
  Report Type: 
  Country: None (occurrence: None)
  Receive Date: 20111209
  Receipt Date: 20111124
  Transmission Date: 20120403
  Serious: Yes (Other)
  Sender: FDA-Public Use
  Company Number: CH-ROCHE-1017938

PATIENT
  Age: 85 Year
  Sex: Female

DRUGS (7)
  1. OXYCODONE HCL [Suspect]
     Indication: PRODUCT USED FOR UNKNOWN INDICATION
     Route: 048
     Dates: start: 20111011, end: 20111013
  2. SINTROM [Concomitant]
     Indication: PRODUCT USED FOR UNKNOWN INDICATION
     Route: 048
  3. TORSEMIDE [Suspect]
     Indication: PRODUCT USED FOR UNKNOWN INDICATION
     Route: 048
     Dates: end: 20111013
  4. BACTRIM [Concomitant]
     Indication: PRODUCT USED FOR UNKNOWN INDICATION
     Dates: start: 20111007, end: 20111013
  5. DIGOXIN [Concomitant]
     Dosage: (0.125 MG ,5 IN 1 WEEK)
     Route: 048
  6. ESCITALOPRAM [Concomitant]
     Indication: PRODUCT USED FOR UNKNOWN INDICATION
     Route: 048
  7. SEROQUEL [Concomitant]
     Indication: PRODUCT USED FOR UNKNOWN INDICATION
     Dates: start: 20111010

REACTIONS (5)
  - RENAL FAILURE ACUTE [None]
  - HALLUCINATION [None]
  - HYPOTENSION [None]
  - CONFUSIONAL STATE [None]
  - ACCIDENTAL OVERDOSE [None]
